FAERS Safety Report 11695556 (Version 1)
Quarter: 2015Q4

REPORT INFORMATION
  Report Type: Spontaneous
  Country: DK (occurrence: DK)
  Receive Date: 20151104
  Receipt Date: 20151104
  Transmission Date: 20160304
  Serious: Yes (Hospitalization)
  Sender: FDA-Public Use
  Company Number: DK-ACCORD-035040

PATIENT
  Age: 68 Year
  Sex: Male

DRUGS (5)
  1. METOPROLOL TARTRATE. [Concomitant]
     Active Substance: METOPROLOL TARTRATE
     Indication: HYPERTENSION
  2. ERGOCALCIFEROL. [Concomitant]
     Active Substance: ERGOCALCIFEROL
     Indication: PRODUCT USED FOR UNKNOWN INDICATION
  3. LEVETIRACETAM ACCORD [Suspect]
     Active Substance: LEVETIRACETAM
     Indication: EPILEPSY
     Dosage: INITIALLY RECEIVED 1000 MG FROM 2013, THEN 1500 MG (1 TABLET TID) SINCE 07-SEP-2015.?STRENGTH: 500M
     Route: 048
     Dates: start: 20150907
  4. PINEX [Concomitant]
     Active Substance: ACETAMINOPHEN
     Indication: PRODUCT USED FOR UNKNOWN INDICATION
     Dosage: IF NECESSARY
  5. FENYTOIN DAK [Suspect]
     Active Substance: PHENYTOIN
     Indication: EPILEPSY
     Dosage: LOADING DOSE THEN FIXED 100 MG X 2 DAILY (AFTER FOOD)
     Route: 048
     Dates: start: 20150907

REACTIONS (2)
  - Balance disorder [Unknown]
  - Dizziness postural [Not Recovered/Not Resolved]

NARRATIVE: CASE EVENT DATE: 20150909
